FAERS Safety Report 19783719 (Version 1)
Quarter: 2021Q3

REPORT INFORMATION
  Report Type: Spontaneous
  Country: DE (occurrence: DE)
  Receive Date: 20210903
  Receipt Date: 20210903
  Transmission Date: 20211014
  Serious: Yes (Congenital Anomaly)
  Sender: FDA-Public Use
  Company Number: DE-ORGANON-O2109DEU000080

PATIENT
  Age: 1 Day
  Sex: Male
  Weight: 3.6 kg

DRUGS (7)
  1. SUMATRIPTAN. [Concomitant]
     Active Substance: SUMATRIPTAN
     Indication: MIGRAINE
     Dosage: 8.2. ? 8.2. GESTATIONAL WEEK
     Route: 064
     Dates: start: 20200509, end: 20200509
  2. BOOSTRIX [Concomitant]
     Active Substance: TETANUS TOXOID, REDUCED DIPHTHERIA TOXOID AND ACELLULAR PERTUSSIS VACCINE, ADSORBED ANTIGENS
     Indication: IMMUNISATION
     Dosage: 30.4. ? 30.4. GESTATIONAL WEEK
     Route: 064
     Dates: start: 20201012, end: 20201012
  3. PARACETAMOL [Concomitant]
     Active Substance: ACETAMINOPHEN
     Indication: MIGRAINE
     Dosage: 1000 [MG/D (UP TO 500, IF NEEDED) ]/ ON ABOUT 11 DAYS, 8.2. ? 33.6. GESTATIONAL WEEK
     Route: 064
  4. IBUPROFEN. [Concomitant]
     Active Substance: IBUPROFEN
     Indication: MIGRAINE
     Dosage: 800 [MG/D (UP TO 400), IF NEEDED) ]/ ON ABOUT 26 DAYS, 4.6. ? 28.6. GESTATIONAL WEEK
     Route: 064
  5. RIZATRIPTAN BENZOATE. [Suspect]
     Active Substance: RIZATRIPTAN BENZOATE
     Indication: MIGRAINE
     Dosage: 10 [MG/D (AS NEEDED) ]/ OFTEN, MORE THAN ON 30 DAYS, 4.6. ? 33.6. GESTATIONAL WEEK
     Route: 064
  6. AZITHROMYCIN ANHYDROUS. [Concomitant]
     Active Substance: AZITHROMYCIN ANHYDROUS
     Indication: MASTITIS
     Dosage: 250 [MG/D ], 9.1. ? 9.6. GESTATIONAL WEEK
     Route: 064
     Dates: start: 20200515, end: 20200520
  7. INFLUVAC TETRA [Concomitant]
     Active Substance: INFLUENZA VIRUS VACCINE QUADRIVALENT TYPE A+B
     Indication: IMMUNISATION
     Dosage: 28.4. ? 28.4. GESTATIONAL WEEK
     Route: 064
     Dates: start: 20200928, end: 20200928

REACTIONS (6)
  - Inguinal hernia [Unknown]
  - Congenital acrochordon [Unknown]
  - Congenital skin dimples [Unknown]
  - Foetal exposure during pregnancy [Unknown]
  - Cryptorchism [Unknown]
  - Granulosa cell tumour of the testis [Unknown]

NARRATIVE: CASE EVENT DATE: 20201204
